FAERS Safety Report 5635234-1 (Version None)
Quarter: 2008Q1

REPORT INFORMATION
  Report Type: 
  Country: None (occurrence: None)
  Receive Date: 20080222
  Receipt Date: 20080212
  Transmission Date: 20080703
  Serious: Yes (Other)
  Sender: FDA-Public Use
  Company Number: US-PFIZER INC-2007101702

PATIENT
  Sex: Male

DRUGS (4)
  1. LIPITOR [Suspect]
     Route: 048
  2. CRESTOR [Suspect]
     Dates: start: 20041101, end: 20050401
  3. NIACIN [Suspect]
  4. ZETIA [Suspect]

REACTIONS (5)
  - DRUG INEFFECTIVE [None]
  - DRUG INTOLERANCE [None]
  - EMPHYSEMA [None]
  - MYALGIA [None]
  - WEIGHT DECREASED [None]
